FAERS Safety Report 4328792-0 (Version None)
Quarter: 2004Q1

REPORT INFORMATION
  Report Type: 
  Country: None (occurrence: None)
  Receive Date: 20040329
  Receipt Date: 20040113
  Transmission Date: 20041129
  Serious: No
  Sender: FDA-Public Use
  Company Number: 04P-163-0246995-00

PATIENT
  Age: 51 Year
  Sex: Female
  Weight: 53.978 kg

DRUGS (9)
  1. HUMIRA [Suspect]
     Indication: RHEUMATOID ARTHRITIS
     Dosage: 40 MG, 1 IN 1 WK, SUBCUTANEOUS
     Route: 058
     Dates: start: 20030601
  2. NABUMETONE [Concomitant]
  3. LANSOPRAZOLE [Concomitant]
  4. DILTIAZEM HYDROCHLORIDE [Concomitant]
  5. FLUCONAZOLE [Concomitant]
  6. LEVOTHYROXINE SODIUM [Concomitant]
  7. LIOTHYRONINE SODIUM [Concomitant]
  8. FLUTICASONE PROPIONATE [Concomitant]
  9. ALBUTEROL SULFATE [Concomitant]

REACTIONS (3)
  - INJECTION SITE ERYTHEMA [None]
  - INJECTION SITE PRURITUS [None]
  - INJECTION SITE SWELLING [None]
